FAERS Safety Report 9303631 (Version 1)
Quarter: 2013Q2

REPORT INFORMATION
  Report Type: Spontaneous
  Country: US (occurrence: None)
  Receive Date: 20130521
  Receipt Date: 20130521
  Transmission Date: 20140414
  Serious: No
  Sender: FDA-Public Use
  Company Number: None

PATIENT
  Age: 79 Year
  Sex: Male
  Weight: 75 kg

DRUGS (3)
  1. PROMETHAZINE [Suspect]
     Indication: ABDOMINAL PAIN LOWER
     Route: 042
     Dates: start: 20130515, end: 20130515
  2. PROMETHAZINE [Suspect]
     Indication: VOMITING
     Route: 042
     Dates: start: 20130515, end: 20130515
  3. HYDROMORPHONE [Suspect]
     Route: 042
     Dates: start: 20130515, end: 20130515

REACTIONS (4)
  - Hypotension [None]
  - Respiratory depression [None]
  - Tonic clonic movements [None]
  - Dyskinesia [None]
